FAERS Safety Report 5046617-5 (Version None)
Quarter: 2006Q2

REPORT INFORMATION
  Report Type: 
  Country: None (occurrence: None)
  Receive Date: 20060630
  Receipt Date: 20060620
  Transmission Date: 20061013
  Serious: Yes (Death)
  Sender: FDA-Public Use
  Company Number: 200612553GDS

PATIENT
  Age: 76 Year
  Sex: Female

DRUGS (6)
  1. AVELOX [Suspect]
     Indication: BRONCHITIS ACUTE
     Dosage: 400 MG, TOTAL DAILY, ORAL
     Route: 048
     Dates: start: 20060601, end: 20060608
  2. LANITOP [Concomitant]
  3. CORDARONE [Concomitant]
  4. FERO-GRADUMET [Concomitant]
  5. COMBIVENT [Concomitant]
  6. CETIRIZINE HCL [Concomitant]

REACTIONS (3)
  - CARDIAC DISORDER [None]
  - GENERAL PHYSICAL HEALTH DETERIORATION [None]
  - SUDDEN DEATH [None]
